FAERS Safety Report 9300214 (Version 1)
Quarter: 2013Q2

REPORT INFORMATION
  Report Type: Spontaneous
  Country: US (occurrence: US)
  Receive Date: 20130521
  Receipt Date: 20130521
  Transmission Date: 20140414
  Serious: Yes (Other)
  Sender: FDA-Public Use
  Company Number: PHEH2013US010865

PATIENT
  Sex: Female

DRUGS (2)
  1. GLEEVEC [Suspect]
     Indication: GASTROINTESTINAL STROMAL TUMOUR
     Dosage: UNK UKN, UNK
     Dates: end: 201302
  2. NAPROXEN [Concomitant]
     Dosage: UNK UKN, UNK

REACTIONS (6)
  - Trismus [Unknown]
  - Candida infection [Unknown]
  - Joint swelling [Unknown]
  - Oedema peripheral [Unknown]
  - Arthropathy [Unknown]
  - Weight decreased [Unknown]
